FAERS Safety Report 6634333-5 (Version None)
Quarter: 2010Q1

REPORT INFORMATION
  Report Type: 
  Country: None (occurrence: None)
  Receive Date: 20100312
  Receipt Date: 20100312
  Transmission Date: 20100710
  Serious: Yes (Life-Threatening, Congenital Anomaly)
  Sender: FDA-Public Use
  Company Number: None

PATIENT
  Weight: 115.2136 kg

DRUGS (1)
  1. ACTOS [Suspect]
     Indication: TYPE 2 DIABETES MELLITUS
     Dosage: 1 DAILY
     Dates: start: 20100208, end: 20100228

REACTIONS (7)
  - CARDIAC FAILURE [None]
  - CHROMATURIA [None]
  - FATIGUE [None]
  - HEADACHE [None]
  - HUNGER [None]
  - OEDEMA PERIPHERAL [None]
  - VISION BLURRED [None]
